FAERS Safety Report 9729607 (Version 1)
Quarter: 2013Q4

REPORT INFORMATION
  Report Type: Spontaneous
  Country: GB (occurrence: None)
  Receive Date: 20131203
  Receipt Date: 20131203
  Transmission Date: 20140711
  Serious: Yes (Other)
  Sender: FDA-Public Use
  Company Number: AUR-APL-2013-09869

PATIENT
  Age: 71 Year
  Sex: Male

DRUGS (1)
  1. OLANZAPINE (OLANZAPINE) [Suspect]
     Indication: SCHIZOPHRENIA
     Route: 048
     Dates: start: 2011

REACTIONS (9)
  - Drug withdrawal syndrome [None]
  - Hyperhidrosis [None]
  - Insomnia [None]
  - Nausea [None]
  - Weight decreased [None]
  - Abnormal dreams [None]
  - Dyspnoea [None]
  - Balance disorder [None]
  - Pulmonary embolism [None]
